FAERS Safety Report 25010719 (Version 1)
Quarter: 2025Q1

REPORT INFORMATION
  Report Type: Spontaneous
  Country: CN (occurrence: CN)
  Receive Date: 20250225
  Receipt Date: 20250225
  Transmission Date: 20250409
  Serious: Yes (Other)
  Sender: FRESENIUS KABI
  Company Number: CN-FreseniusKabi-FK202502859

PATIENT
  Age: 0 Year
  Sex: Male
  Weight: 0.67 kg

DRUGS (6)
  1. SMOFLIPID [Suspect]
     Active Substance: FISH OIL\MEDIUM-CHAIN TRIGLYCERIDES\OLIVE OIL\SOYBEAN OIL
     Indication: Nutritional supplementation
     Dosage: ROUTE OF ADMIN: PUMP INJECTION?FORM OF ADMIN: INJECTION
     Dates: start: 20250122, end: 20250214
  2. AMINO ACIDS, SOURCE UNSPECIFIED [Concomitant]
     Active Substance: AMINO ACIDS, SOURCE UNSPECIFIED
     Indication: Nutritional supplementation
     Dosage: ROA: PUMP INJECTION?FOA: INJECTION
     Dates: start: 20250122, end: 20250214
  3. POTASSIUM CHLORIDE [Concomitant]
     Active Substance: POTASSIUM CHLORIDE
     Indication: Nutritional supplementation
     Dosage: ROA: PUMP INJECTION?FOA: INJECTION
     Dates: start: 20250122, end: 20250214
  4. VITAMINS [Concomitant]
     Active Substance: VITAMINS
     Indication: Nutritional supplementation
     Dosage: ROA: PUMP INJECTION?FOA: POWDER FOR INJECTION
     Dates: start: 20250122, end: 20250214
  5. Fat-soluble Vitamin for Injection (I) [Concomitant]
     Indication: Nutritional supplementation
     Dosage: ROA: PUMP INJECTION?FOA: POWDER FOR INJECTION?0.14 PIECE IVGTT ONCE FOR INTRAVENOUS NUTRITIONAL SUPP
     Dates: start: 20250122, end: 20250214
  6. DEXTROSE [Concomitant]
     Active Substance: DEXTROSE MONOHYDRATE
     Indication: Vehicle solution use
     Dosage: ROA: PUMP INJECTION?FOA: INJECTION
     Dates: start: 20250122, end: 20250214

REACTIONS (3)
  - Blood triglycerides increased [Recovering/Resolving]
  - Blood cholesterol increased [Not Recovered/Not Resolved]
  - Low density lipoprotein increased [Not Recovered/Not Resolved]

NARRATIVE: CASE EVENT DATE: 20250203
